FAERS Safety Report 9200199 (Version 5)
Quarter: 2013Q2

REPORT INFORMATION
  Report Type: Report from Study
  Country: US (occurrence: US)
  Receive Date: 20130329
  Receipt Date: 20130617
  Transmission Date: 20140414
  Serious: Yes (Hospitalization)
  Sender: FDA-Public Use
  Company Number: US-ROCHE-1203516

PATIENT
  Age: 66 Year
  Sex: Female
  Weight: 84.9 kg

DRUGS (3)
  1. TRASTUZUMAB EMTANSINE [Suspect]
     Indication: HER-2 POSITIVE BREAST CANCER
     Dosage: MOST RECENT DOSE PRIOR TO SAE: 14/FEB/2013
     Route: 042
     Dates: start: 20130214
  2. PRILOSEC [Concomitant]
  3. PROZAC [Concomitant]

REACTIONS (1)
  - Pneumonia [Recovered/Resolved]
